FAERS Safety Report 4395119-8 (Version None)
Quarter: 2004Q3

REPORT INFORMATION
  Report Type: 
  Country: None (occurrence: None)
  Receive Date: 20040706
  Receipt Date: 20040621
  Transmission Date: 20050211
  Serious: Yes (Hospitalization)
  Sender: FDA-Public Use
  Company Number: 04P-020-0264792-00

PATIENT
  Age: 40 Year
  Sex: Male
  Weight: 52 kg

DRUGS (6)
  1. KALETRA [Suspect]
     Indication: HIV INFECTION
     Dosage: 3 CAPSULE, 2 IN 1 D, ORAL
     Route: 048
  2. STAVUDINE [Concomitant]
  3. LAMIVUDINE [Concomitant]
  4. NEVIRAPINE [Concomitant]
  5. SULFASALAZINE [Concomitant]
  6. PREDNISONE [Concomitant]

REACTIONS (3)
  - PROCTOCOLITIS [None]
  - RASH [None]
  - ULCER [None]
